FAERS Safety Report 20838088 (Version 1)
Quarter: 2022Q2

REPORT INFORMATION
  Report Type: Spontaneous
  Country: US (occurrence: None)
  Receive Date: 20220516
  Receipt Date: 20220516
  Transmission Date: 20220720
  Serious: Yes (Other)
  Sender: FDA-Public Use
  Company Number: None

PATIENT
  Age: 53 Year
  Sex: Female
  Weight: 82 kg

DRUGS (1)
  1. BEBTELOVIMAB [Suspect]
     Active Substance: BEBTELOVIMAB
     Indication: COVID-19
     Dates: start: 20220506, end: 20220506

REACTIONS (6)
  - Pruritus [None]
  - Throat irritation [None]
  - Cough [None]
  - Throat tightness [None]
  - Somnolence [None]
  - Injection related reaction [None]

NARRATIVE: CASE EVENT DATE: 20220506
